FAERS Safety Report 4899591-6 (Version None)
Quarter: 2006Q1

REPORT INFORMATION
  Report Type: 
  Country: None (occurrence: None)
  Receive Date: 20060123
  Receipt Date: 20050901
  Transmission Date: 20060701
  Serious: Yes (Other)
  Sender: FDA-Public Use
  Company Number: PERC20050039

PATIENT
  Sex: Female

DRUGS (2)
  1. PERCOCET [Suspect]
  2. AMBIEN [Concomitant]

REACTIONS (1)
  - DRUG DEPENDENCE [None]
